FAERS Safety Report 6770591-4 (Version None)
Quarter: 2010Q2

REPORT INFORMATION
  Report Type: 
  Country: None (occurrence: None)
  Receive Date: 20100615
  Receipt Date: 20100607
  Transmission Date: 20101027
  Serious: Yes (Other)
  Sender: FDA-Public Use
  Company Number: CA-ASTRAZENECA-2010SE27348

PATIENT
  Age: 66 Year
  Sex: Male
  Weight: 86.2 kg

DRUGS (8)
  1. CRESTOR [Suspect]
     Route: 048
  2. ACCURETIC [Concomitant]
     Dosage: 20/12.5 MG
     Route: 048
  3. ADALAT CC [Concomitant]
     Route: 048
  4. ASAPHEN [Concomitant]
     Route: 048
  5. LOPRESOR SR [Concomitant]
     Route: 048
  6. PMS-METFORMIN [Concomitant]
     Route: 048
  7. PMS-TIMOLOL [Concomitant]
     Route: 047
  8. SYNTHROID [Concomitant]
     Route: 048

REACTIONS (3)
  - ACTIVITIES OF DAILY LIVING IMPAIRED [None]
  - ASTHENIA [None]
  - MYALGIA [None]
